FAERS Safety Report 25752708 (Version 1)
Quarter: 2025Q3

REPORT INFORMATION
  Report Type: Spontaneous
  Country: US (occurrence: US)
  Receive Date: 20250902
  Receipt Date: 20250902
  Transmission Date: 20251021
  Serious: Yes (Other)
  Sender: PFIZER
  Company Number: US-PFIZER INC-202500172384

PATIENT
  Age: 38 Year
  Sex: Male

DRUGS (1)
  1. VELSIPITY [Suspect]
     Active Substance: ETRASIMOD ARGININE
     Dosage: 2 MG, 1X/DAY
     Route: 048

REACTIONS (4)
  - Haematochezia [Unknown]
  - Proctalgia [Unknown]
  - Anorectal disorder [Unknown]
  - Haemorrhoids [Not Recovered/Not Resolved]
